FAERS Safety Report 10273760 (Version 1)
Quarter: 2014Q3

REPORT INFORMATION
  Report Type: Spontaneous
  Country: IT (occurrence: IT)
  Receive Date: 20140702
  Receipt Date: 20140702
  Transmission Date: 20150326
  Serious: Yes (Hospitalization)
  Sender: FDA-Public Use
  Company Number: IT-ASTRAZENECA-2014SE46317

PATIENT
  Age: 24954 Day
  Sex: Male

DRUGS (1)
  1. BRILIQUE [Suspect]
     Active Substance: TICAGRELOR
     Indication: CARDIAC DISORDER
     Route: 048
     Dates: start: 20140602, end: 20140607

REACTIONS (4)
  - Petechiae [Not Recovered/Not Resolved]
  - Ecchymosis [Not Recovered/Not Resolved]
  - Blister [Not Recovered/Not Resolved]
  - Gravitational oedema [Not Recovered/Not Resolved]

NARRATIVE: CASE EVENT DATE: 20140607
